FAERS Safety Report 22100693 (Version 5)
Quarter: 2023Q2

REPORT INFORMATION
  Report Type: Report from Study
  Country: US (occurrence: US)
  Receive Date: 20230316
  Receipt Date: 20230503
  Transmission Date: 20230722
  Serious: Yes (Hospitalization)
  Sender: FDA-Public Use
  Company Number: US-GBT-020795

PATIENT
  Age: 55 Year
  Sex: Male

DRUGS (2)
  1. OXBRYTA [Suspect]
     Active Substance: VOXELOTOR
     Indication: Sickle cell disease
     Route: 048
     Dates: start: 20201102
  2. FOLIC ACID [Concomitant]
     Active Substance: FOLIC ACID
     Indication: Sickle cell disease
     Route: 048
     Dates: start: 20191107

REACTIONS (3)
  - Acute chest syndrome [Recovered/Resolved]
  - Sickle cell anaemia with crisis [Recovered/Resolved]
  - Iron overload [Recovered/Resolved]

NARRATIVE: CASE EVENT DATE: 20230215
